FAERS Safety Report 8354954-1 (Version None)
Quarter: 2012Q2

REPORT INFORMATION
  Report Type: 
  Country: None (occurrence: None)
  Receive Date: 20120511
  Receipt Date: 20120508
  Transmission Date: 20120825
  Serious: Yes (Life-Threatening)
  Sender: FDA-Public Use
  Company Number: US-CELGENEUS-163-21880-12041055

PATIENT
  Sex: Female

DRUGS (18)
  1. ALPHAGAN P [Concomitant]
     Route: 065
  2. GABAPENTIN [Concomitant]
     Route: 065
  3. LIDODERM [Concomitant]
     Route: 065
  4. GLUCOSAMINE [Concomitant]
     Route: 065
  5. WELLBUTRIN [Concomitant]
     Route: 065
  6. REVLIMID [Suspect]
     Indication: MYELODYSPLASTIC SYNDROME
     Dosage: 10 MILLIGRAM
     Route: 048
     Dates: start: 20071001
  7. CELEXA [Concomitant]
     Route: 065
  8. LOVASTATIN [Concomitant]
     Route: 065
  9. MIRALAX [Concomitant]
     Route: 065
  10. CALCITRIOL [Concomitant]
     Route: 065
  11. COSOPT [Concomitant]
     Route: 065
  12. NEXIUM [Concomitant]
     Route: 065
  13. PIROXICAM [Concomitant]
     Route: 065
  14. REVLIMID [Suspect]
     Dosage: 10 MILLIGRAM
     Route: 048
     Dates: start: 20080401
  15. CALCIUM CARBONATE [Concomitant]
     Route: 065
  16. BUSPAR [Concomitant]
     Route: 065
  17. LEVOTHYROXINE SODIUM [Concomitant]
     Route: 065
  18. PYRIDOXINE HCL [Concomitant]
     Route: 065

REACTIONS (1)
  - CONDITION AGGRAVATED [None]
